FAERS Safety Report 9257457 (Version 2)
Quarter: 2014Q1

REPORT INFORMATION
  Report Type: Spontaneous
  Country: US (occurrence: None)
  Receive Date: 20121212
  Receipt Date: 20130314
  Transmission Date: 20141002
  Serious: No
  Sender: FDA-Public Use
  Company Number: 1209USA005788

PATIENT
  Age: 41 Year
  Sex: Male
  Weight: 99.8 kg

DRUGS (3)
  1. VICTRELIS [Suspect]
     Indication: HEPATITIS C
     Route: 048
     Dates: start: 20120813, end: 20121210
  2. RIBAVIRIN [Suspect]
     Indication: HEPATITIS C
     Route: 048
     Dates: start: 20120716, end: 20121210
  3. PEGASYS [Suspect]
     Indication: HEPATITIS C
     Dates: start: 20120716, end: 20121210

REACTIONS (13)
  - Musculoskeletal stiffness [None]
  - Dysgeusia [None]
  - Bronchitis [None]
  - Sinusitis [None]
  - Pyrexia [None]
  - Drug dose omission [None]
  - Somnolence [None]
  - Decreased appetite [None]
  - Nausea [None]
  - Influenza like illness [None]
  - Tooth fracture [None]
  - Weight decreased [None]
  - Therapeutic response decreased [None]
